FAERS Safety Report 10220073 (Version 1)
Quarter: 2014Q1

REPORT INFORMATION
  Report Type: Spontaneous
  Country: US (occurrence: None)
  Receive Date: 20140306
  Receipt Date: 20140306
  Transmission Date: 20141002
  Serious: Yes (Other)
  Sender: FDA-Public Use
  Company Number: 163-21880-13054228

PATIENT
  Age: 64 Year
  Sex: Male
  Weight: 77.11 kg

DRUGS (8)
  1. REVLIMID (LENALIDOMIDE) (25 MILLIGRAM, CAPSULES) [Suspect]
     Indication: MANTLE CELL LYMPHOMA
     Dosage: 25 MG, 21 IN 21 D, PO
     Route: 048
     Dates: start: 20120930, end: 20130506
  2. SUDAFED 12 HOUR (PSEUDOEPHEDRINE HYDROCHLORIDE) (UNKNOWN) [Concomitant]
  3. LISINOPRIL (LISINOPRIL) (TABLETS) [Concomitant]
  4. OMEPRAZOLE (OMEPRAZOLE) (CAPSULES) [Concomitant]
  5. ACYCLOVIR (ACICLOVIR) (CAPSULES) [Concomitant]
  6. MULTIVITAMINS (MULTIVITAMINS) (TABLETS) [Concomitant]
  7. FLOMAX (TAMSULOSIN HYDROCHLORIDE) (CAPSULES) [Concomitant]
  8. ASA (ACETYLSALICYLIC ACID) (UNKNOWN) [Concomitant]

REACTIONS (1)
  - White blood cell count decreased [None]
